FAERS Safety Report 19964726 (Version 28)
Quarter: 2025Q2

REPORT INFORMATION
  Report Type: Spontaneous
  Country: US (occurrence: US)
  Receive Date: 20211018
  Receipt Date: 20250627
  Transmission Date: 20250716
  Serious: Yes (Other)
  Sender: PFIZER
  Company Number: US-PFIZER INC-2021154869

PATIENT
  Age: 64 Year
  Sex: Female
  Weight: 54.43 kg

DRUGS (3)
  1. PREMARIN [Suspect]
     Active Substance: ESTROGENS, CONJUGATED
     Indication: Hot flush
     Dosage: 1.25 MG, 2X/DAY
  2. PREMARIN [Suspect]
     Active Substance: ESTROGENS, CONJUGATED
     Indication: Hormone replacement therapy
     Dosage: 0.625 MG, 2X/DAY
     Route: 048
  3. PREMARIN [Suspect]
     Active Substance: ESTROGENS, CONJUGATED
     Dosage: TAKE 1 TABLET (1.25 MG TOTAL) BY MOUTH 2 TIMES A DAY
     Route: 048

REACTIONS (11)
  - Neoplasm malignant [Unknown]
  - Illness [Unknown]
  - Weight decreased [Unknown]
  - Vomiting [Unknown]
  - Malaise [Unknown]
  - Vertigo [Unknown]
  - Insomnia [Unknown]
  - Gastrointestinal disorder [Unknown]
  - Stress [Unknown]
  - Off label use [Unknown]
  - Product dispensing error [Unknown]
